FAERS Safety Report 9719166 (Version 1)
Quarter: 2013Q4

REPORT INFORMATION
  Report Type: Spontaneous
  Country: ES (occurrence: ES)
  Receive Date: 20131127
  Receipt Date: 20131127
  Transmission Date: 20140711
  Serious: Yes (Hospitalization)
  Sender: FDA-Public Use
  Company Number: PHHY2013ES133851

PATIENT
  Age: 41 Year
  Sex: Female

DRUGS (4)
  1. CARBOPLATIN [Suspect]
     Indication: OVARIAN CANCER
     Dosage: 625 MG, UNK
     Dates: start: 20130916, end: 20130916
  2. PACLITAXEL [Suspect]
     Indication: OVARIAN CANCER
     Dosage: 224 MG, UNK
     Dates: start: 20130916, end: 20130916
  3. ZARZIO [Suspect]
     Indication: NEUTROPENIA
     Dosage: 300 UG, (30 MU/0.5 ML)
     Dates: start: 20130917, end: 20130924
  4. EPOETIN ALFA [Suspect]
     Dosage: 4000 IU, UNK
     Dates: start: 20130916, end: 20130916

REACTIONS (1)
  - Arthralgia [Recovered/Resolved]
